FAERS Safety Report 4380874-3 (Version None)
Quarter: 2004Q2

REPORT INFORMATION
  Report Type: 
  Country: None (occurrence: None)
  Receive Date: 20040616
  Receipt Date: 20040605
  Transmission Date: 20050107
  Serious: Yes (Life-Threatening, Hospitalization)
  Sender: FDA-Public Use
  Company Number: 04P-048-0262919-00

PATIENT
  Age: 49 Year
  Sex: Female
  Weight: 98.7 kg

DRUGS (2)
  1. MERIDIA [Suspect]
     Dosage: UNK
     Dates: start: 20040409
  2. METHOTREXATE [Concomitant]

REACTIONS (3)
  - BLOOD DISORDER [None]
  - GASTRIC HAEMORRHAGE [None]
  - PULMONARY EMBOLISM [None]
